FAERS Safety Report 8830953 (Version 2)
Quarter: 2013Q2

REPORT INFORMATION
  Report Type: Spontaneous
  Country: US (occurrence: US)
  Receive Date: 20121008
  Receipt Date: 20130624
  Transmission Date: 20140414
  Serious: Yes (Other)
  Sender: FDA-Public Use
  Company Number: US-UCBSA-068172

PATIENT
  Age: 39 Year
  Sex: Male

DRUGS (2)
  1. CIMZIA [Suspect]
     Indication: CROHN^S DISEASE
     Dosage: 2 SETS OF INDUCTION
     Dates: start: 20120812, end: 2012
  2. REQUIP [Concomitant]
     Indication: RESTLESS LEGS SYNDROME
     Dates: start: 201201

REACTIONS (1)
  - Suicidal ideation [Recovering/Resolving]
